FAERS Safety Report 6805193-4 (Version None)
Quarter: 2010Q2

REPORT INFORMATION
  Report Type: 
  Country: None (occurrence: None)
  Receive Date: 20100628
  Receipt Date: 20071018
  Transmission Date: 20101027
  Serious: Yes (Other)
  Sender: FDA-Public Use
  Company Number: US-PFIZER INC-2007079556

PATIENT
  Age: 75 Year
  Sex: Female

DRUGS (4)
  1. CADUET [Suspect]
  2. METFORMIN HCL [Concomitant]
  3. ACTOS [Concomitant]
  4. GLIPIZIDE [Concomitant]

REACTIONS (2)
  - BLOOD ELECTROLYTES INCREASED [None]
  - BLOOD GLUCOSE INCREASED [None]
